FAERS Safety Report 9004389 (Version 3)
Quarter: 2013Q2

REPORT INFORMATION
  Report Type: Spontaneous
  Country: US (occurrence: US)
  Receive Date: 20130108
  Receipt Date: 20130619
  Transmission Date: 20140414
  Serious: Yes (Other)
  Sender: FDA-Public Use
  Company Number: US-ELI_LILLY_AND_COMPANY-US201301001853

PATIENT
  Sex: Female
  Weight: 73.6 kg

DRUGS (16)
  1. HUMALOG LISPRO [Suspect]
     Indication: DIABETES MELLITUS
     Dosage: 48 U, QID
     Route: 058
     Dates: start: 20120112
  2. HUMALOG LISPRO [Suspect]
     Route: 058
  3. HUMALOG LISPRO [Suspect]
     Dosage: UNK
     Route: 058
  4. LEVEMIR [Concomitant]
  5. ACTOS [Concomitant]
  6. ATENOLOL [Concomitant]
  7. CO Q-10 [Concomitant]
     Dosage: 50 MG, QD
  8. FUROSEMIDE [Concomitant]
  9. GLYBURIDE [Concomitant]
  10. LEFLUNOMIDE [Concomitant]
  11. LISINOPRIL [Concomitant]
  12. LOVASTATIN [Concomitant]
  13. MSM [Concomitant]
     Dosage: 2000 MG, QD
  14. PREDNISONE [Concomitant]
     Dosage: 10 MG, TID
  15. TOBRADEX [Concomitant]
     Dosage: UNK, PRN
  16. VITAMIN E [Concomitant]
     Dosage: 400 IU, QD

REACTIONS (4)
  - Blindness [Unknown]
  - Diabetic retinal oedema [Unknown]
  - Diabetic retinopathy [Unknown]
  - Uveitis [Unknown]
